FAERS Safety Report 9806515 (Version 2)
Quarter: 2014Q1

REPORT INFORMATION
  Report Type: Spontaneous
  Country: AR (occurrence: AR)
  Receive Date: 20140109
  Receipt Date: 20140116
  Transmission Date: 20141002
  Serious: Yes (Other)
  Sender: FDA-Public Use
  Company Number: AR-PFIZER INC-2014006107

PATIENT
  Age: 9 Year
  Sex: Female

DRUGS (10)
  1. GENOTROPIN [Suspect]
     Indication: HYPOPITUITARISM
     Dosage: 1 TO 1.4 MG 7X/WEEK
     Dates: start: 20051231
  2. HYDROCORTISONE [Concomitant]
  3. OMEPRAZOLE [Concomitant]
  4. FOLIC ACID [Concomitant]
  5. CALCIUM CARBONATE [Concomitant]
  6. CALCITRIOL [Concomitant]
  7. BECOZYM [Concomitant]
  8. LACTULON [Concomitant]
  9. MUPIROCIN [Concomitant]
  10. SALBUTAMOL [Concomitant]

REACTIONS (3)
  - Renal failure chronic [Not Recovered/Not Resolved]
  - Astigmatism [Not Recovered/Not Resolved]
  - Drug ineffective [Not Recovered/Not Resolved]
